FAERS Safety Report 8422112-8 (Version None)
Quarter: 2012Q2

REPORT INFORMATION
  Report Type: 
  Country: None (occurrence: None)
  Receive Date: 20120608
  Receipt Date: 20120601
  Transmission Date: 20120825
  Serious: Yes (Hospitalization)
  Sender: FDA-Public Use
  Company Number: CA-ROCHE-1074814

PATIENT
  Sex: Male

DRUGS (4)
  1. AVASTIN [Suspect]
     Route: 042
     Dates: start: 20100729
  2. AVASTIN [Suspect]
     Route: 042
     Dates: start: 20101124
  3. AVASTIN [Suspect]
     Indication: GLIOBLASTOMA
     Route: 042
     Dates: start: 20080918
  4. AVASTIN [Suspect]
     Route: 042
     Dates: start: 20101216

REACTIONS (1)
  - NEOPLASM RECURRENCE [None]
